FAERS Safety Report 11321378 (Version 3)
Quarter: 2018Q1

REPORT INFORMATION
  Report Type: Spontaneous
  Country: US (occurrence: US)
  Receive Date: 20150729
  Receipt Date: 20180314
  Transmission Date: 20180508
  Serious: Yes (Hospitalization, Disabling)
  Sender: FDA-Public Use
  Company Number: US-ENDO PHARMACEUTICALS INC.-2015-001754

PATIENT
  Age: 81 Year
  Sex: Male
  Weight: 83.9 kg

DRUGS (5)
  1. TESTOPEL [Suspect]
     Active Substance: TESTOSTERONE
     Indication: ANDROGEN REPLACEMENT THERAPY
     Dosage: UNK UNKNOWN, UNKNOWN
     Route: 058
     Dates: start: 2013, end: 2013
  2. DILTIAZEM. [Concomitant]
     Active Substance: DILTIAZEM
     Indication: BLOOD PRESSURE MEASUREMENT
     Dosage: UNK UNKNOWN, UNKNOWN
     Route: 065
     Dates: start: 2010
  3. PRILOSEC [Concomitant]
     Active Substance: OMEPRAZOLE MAGNESIUM
     Indication: DYSPEPSIA
     Dosage: UNK UNKNOWN, UNKNOWN
     Route: 065
     Dates: start: 2002
  4. PLAVIX [Concomitant]
     Active Substance: CLOPIDOGREL BISULFATE
     Indication: ANTICOAGULANT THERAPY
     Dosage: UNK UNKNOWN, UNKNOWN
     Route: 065
     Dates: start: 2010
  5. AXIRON [Suspect]
     Active Substance: TESTOSTERONE
     Indication: ANDROGEN REPLACEMENT THERAPY
     Dosage: UNK UNKNOWN, UNKNOWN
     Route: 065
     Dates: start: 2011, end: 2013

REACTIONS (4)
  - Atrial fibrillation [Unknown]
  - Pneumonia [Unknown]
  - Deep vein thrombosis [Not Recovered/Not Resolved]
  - Syncope [Unknown]

NARRATIVE: CASE EVENT DATE: 20130809
